FAERS Safety Report 7109172-1 (Version None)
Quarter: 2010Q4

REPORT INFORMATION
  Report Type: 
  Country: None (occurrence: None)
  Receive Date: 20101117
  Receipt Date: 20101115
  Transmission Date: 20110411
  Serious: Yes (Disabling, Other)
  Sender: FDA-Public Use
  Company Number: AU-PFIZER INC-2010135565

PATIENT
  Sex: Female

DRUGS (9)
  1. LYRICA [Suspect]
     Indication: COMPLEX REGIONAL PAIN SYNDROME
     Dosage: 75 MG, 2X/DAY
     Route: 048
  2. LYRICA [Suspect]
     Dosage: 75MG MORNING, 75MG MIDDAY, 150MG AT NIGHT
     Route: 048
  3. LYRICA [Suspect]
     Indication: NEURALGIA
  4. EFFEXOR [Concomitant]
     Indication: PAIN
     Dosage: 225 MG, 1X/DAY IN THE MORNING
     Route: 048
  5. EFFEXOR [Concomitant]
     Indication: DEPRESSION
  6. SEROQUEL [Concomitant]
     Indication: DEPRESSION
     Dosage: 50 MG, 1X/DAY AT NIGHT
  7. SEROQUEL [Concomitant]
     Indication: COMPLEX REGIONAL PAIN SYNDROME
  8. SEROQUEL [Concomitant]
  9. MOBIC [Concomitant]
     Indication: PAIN
     Dosage: 15 MG, UNK
     Route: 048

REACTIONS (7)
  - ABASIA [None]
  - DRY MOUTH [None]
  - DYSGEUSIA [None]
  - MUSCLE SPASMS [None]
  - MUSCULAR WEAKNESS [None]
  - SEDATION [None]
  - TREMOR [None]
